FAERS Safety Report 6060830-X (Version None)
Quarter: 2009Q1

REPORT INFORMATION
  Report Type: 
  Country: None (occurrence: None)
  Receive Date: 20090202
  Receipt Date: 20090102
  Transmission Date: 20090719
  Serious: No
  Sender: FDA-Public Use
  Company Number: US-BAYER-200827889NA

PATIENT
  Age: 28 Year
  Sex: Female
  Weight: 61 kg

DRUGS (1)
  1. MIRENA [Suspect]
     Indication: CONTRACEPTION
     Route: 015
     Dates: start: 20071031, end: 20080721

REACTIONS (6)
  - ABDOMINAL PAIN [None]
  - DISCOMFORT [None]
  - INFERTILITY [None]
  - IUCD COMPLICATION [None]
  - PROCEDURAL PAIN [None]
  - VAGINAL HAEMORRHAGE [None]
